FAERS Safety Report 13919228 (Version 8)
Quarter: 2017Q4

REPORT INFORMATION
  Report Type: Report from Study
  Country: None (occurrence: TW)
  Receive Date: 20170830
  Receipt Date: 20171115
  Transmission Date: 20180320
  Serious: Yes (Hospitalization, Other)
  Sender: FDA-Public Use
  Company Number: TW-ABBVIE-17K-153-2086277-00

PATIENT
  Age: 70 Year
  Sex: Female
  Weight: 46 kg

DRUGS (3)
  1. HUMIRA [Suspect]
     Active Substance: ADALIMUMAB
     Indication: COLITIS ULCERATIVE
     Route: 058
     Dates: start: 20170703, end: 20170925
  2. PENTASA [Concomitant]
     Active Substance: MESALAMINE
     Indication: COLITIS ULCERATIVE
     Route: 054
     Dates: start: 20140220
  3. ASACOL [Concomitant]
     Active Substance: MESALAMINE
     Indication: COLITIS ULCERATIVE
     Dosage: 1600-4800 MG, BID - TID, IRREGULAR
     Route: 048
     Dates: start: 20140220

REACTIONS (13)
  - Spinal compression fracture [Unknown]
  - Haemorrhoids [Unknown]
  - Hepatic steatosis [Unknown]
  - C-reactive protein increased [Unknown]
  - Red blood cell sedimentation rate increased [Unknown]
  - Colitis [Recovering/Resolving]
  - Pyrexia [Recovered/Resolved]
  - Weight increased [Unknown]
  - Hepatic cyst [Unknown]
  - White blood cell count increased [Recovered/Resolved]
  - Pyrexia [Recovering/Resolving]
  - Nephrocalcinosis [Unknown]
  - Clostridium test positive [Unknown]

NARRATIVE: CASE EVENT DATE: 2017
